FAERS Safety Report 5623280-3 (Version None)
Quarter: 2008Q1

REPORT INFORMATION
  Report Type: 
  Country: None (occurrence: None)
  Receive Date: 20080207
  Receipt Date: 20080130
  Transmission Date: 20080703
  Serious: Yes (Death, Life-Threatening, Hospitalization, Other)
  Sender: FDA-Public Use
  Company Number: 2008-00312

PATIENT
  Age: 65 Year
  Sex: Male

DRUGS (3)
  1. VELCADE [Suspect]
     Indication: DRUG USE FOR UNKNOWN INDICATION
     Dates: start: 20071001
  2. REVLIMID [Suspect]
     Indication: MULTIPLE MYELOMA
     Dosage: 25.00 MG,
     Dates: start: 20070921, end: 20071007
  3. DEXAMETHASONE TAB [Concomitant]

REACTIONS (4)
  - NEUTROPENIA [None]
  - SEPSIS [None]
  - SEPTIC SHOCK [None]
  - STEVENS-JOHNSON SYNDROME [None]
